FAERS Safety Report 25500192 (Version 1)
Quarter: 2025Q3

REPORT INFORMATION
  Report Type: Spontaneous
  Country: CN (occurrence: CN)
  Receive Date: 20250701
  Receipt Date: 20250701
  Transmission Date: 20251021
  Serious: Yes (Disabling)
  Sender: TAKEDA
  Company Number: CN-TAKEDA-2025TUS058024

PATIENT
  Age: 78 Year
  Sex: Female
  Weight: 50 kg

DRUGS (4)
  1. ALBUMIN HUMAN [Suspect]
     Active Substance: ALBUMIN HUMAN
     Indication: Supplementation therapy
     Dosage: 10 GRAM, QD
     Dates: start: 20250514, end: 20250517
  2. OMADACYCLINE TOSYLATE [Suspect]
     Active Substance: OMADACYCLINE TOSYLATE
     Indication: Supplementation therapy
     Dosage: 0.2 GRAM, QD
     Dates: start: 20250516, end: 20250517
  3. SODIUM CHLORIDE [Concomitant]
     Active Substance: SODIUM CHLORIDE
     Indication: Menstrual disorder
     Dosage: 100.000 MILLILITER, QD
     Dates: start: 20250514, end: 20250517
  4. SODIUM CHLORIDE [Concomitant]
     Active Substance: SODIUM CHLORIDE
     Dosage: 100.000 MILLILITER, QD
     Dates: start: 20250516, end: 20250517

REACTIONS (2)
  - Alanine aminotransferase increased [Recovered/Resolved]
  - Aspartate aminotransferase increased [Recovered/Resolved]

NARRATIVE: CASE EVENT DATE: 20250517
